FAERS Safety Report 7102775-X (Version None)
Quarter: 2010Q4

REPORT INFORMATION
  Report Type: 
  Country: None (occurrence: None)
  Receive Date: 20101109
  Receipt Date: 20101026
  Transmission Date: 20110411
  Serious: Yes (Hospitalization, Other)
  Sender: FDA-Public Use
  Company Number: 2010AP002282

PATIENT
  Age: 55 Year
  Sex: Female

DRUGS (2)
  1. LITHIUM CARBONATE CAP [Suspect]
     Indication: BIPOLAR DISORDER
  2. CIPROFLOXACIN [Concomitant]

REACTIONS (1)
  - RENAL CYST [None]
